FAERS Safety Report 6807309-2 (Version None)
Quarter: 2010Q2

REPORT INFORMATION
  Report Type: 
  Country: None (occurrence: None)
  Receive Date: 20100629
  Receipt Date: 20080822
  Transmission Date: 20101027
  Serious: No
  Sender: FDA-Public Use
  Company Number: US-PFIZER INC-2008064938

PATIENT
  Sex: Female
  Weight: 57.7 kg

DRUGS (6)
  1. TIKOSYN [Suspect]
     Indication: ATRIAL FIBRILLATION
     Route: 048
     Dates: start: 20080715, end: 20080727
  2. TIKOSYN [Suspect]
     Route: 048
     Dates: start: 20080728
  3. TOPROL-XL [Concomitant]
  4. CENTRUM SILVER [Concomitant]
  5. COUMADIN [Concomitant]
  6. POTASSIUM [Concomitant]
     Dates: start: 20080715

REACTIONS (2)
  - HEART RATE INCREASED [None]
  - ILL-DEFINED DISORDER [None]
